FAERS Safety Report 5713326-6 (Version None)
Quarter: 2008Q2

REPORT INFORMATION
  Report Type: 
  Country: None (occurrence: None)
  Receive Date: 20080422
  Receipt Date: 20080415
  Transmission Date: 20081010
  Serious: Yes (Hospitalization, Other)
  Sender: FDA-Public Use
  Company Number: AU-PFIZER INC-2008013794

PATIENT
  Sex: Male

DRUGS (4)
  1. SUTENT [Suspect]
     Indication: RENAL CELL CARCINOMA
     Route: 048
     Dates: start: 20071205, end: 20080125
  2. SIMVASTATIN [Concomitant]
     Dosage: DAILY DOSE:40MG-FREQ:DAILY
     Route: 048
  3. METOPROLOL TARTRATE [Concomitant]
     Dosage: DAILY DOSE:25MG-FREQ:TWICE DAILY
     Route: 048
  4. METOCLOPRAMIDE [Concomitant]
     Dosage: DAILY DOSE:10MG-FREQ:AS NEEDED
     Route: 048

REACTIONS (4)
  - GINGIVAL BLEEDING [None]
  - LETHARGY [None]
  - ODYNOPHAGIA [None]
  - PANCYTOPENIA [None]
